FAERS Safety Report 24802765 (Version 2)
Quarter: 2025Q1

REPORT INFORMATION
  Report Type: Report from Study
  Country: US (occurrence: US)
  Receive Date: 20250103
  Receipt Date: 20250203
  Transmission Date: 20250409
  Serious: No
  Sender: MERCK
  Company Number: US-009507513-2501USA000406

PATIENT
  Age: 55 Year
  Sex: Male
  Weight: 82.5 kg

DRUGS (15)
  1. SOTATERCEPT [Suspect]
     Active Substance: SOTATERCEPT
     Indication: Product used for unknown indication
  2. WINREVAIR [Suspect]
     Active Substance: SOTATERCEPT-CSRK
     Indication: Product used for unknown indication
     Route: 065
  3. TYVASO DPI [Suspect]
     Active Substance: TREPROSTINIL
     Indication: Pulmonary arterial hypertension
     Dates: start: 20240117
  4. TYVASO DPI [Suspect]
     Active Substance: TREPROSTINIL
  5. TYVASO DPI [Suspect]
     Active Substance: TREPROSTINIL
     Dosage: 80 MICROGRAM (64 MICROGRAM + 16 MICROGRAM), QID
     Dates: start: 2024
  6. TYVASO DPI [Suspect]
     Active Substance: TREPROSTINIL
     Dosage: 16 MICROGRAM
  7. TYLENOL [Concomitant]
     Active Substance: ACETAMINOPHEN
  8. LASIX [Concomitant]
     Active Substance: FUROSEMIDE
  9. CINACALCET HYDROCHLORIDE [Concomitant]
     Active Substance: CINACALCET HYDROCHLORIDE
  10. TADALAFIL [Concomitant]
     Active Substance: TADALAFIL
  11. CALCITRIOL [Concomitant]
     Active Substance: CALCITRIOL
  12. VITAMIN D3 [Concomitant]
     Active Substance: CHOLECALCIFEROL
  13. ULORIC [Concomitant]
     Active Substance: FEBUXOSTAT
  14. KLOR-CON [Concomitant]
     Active Substance: POTASSIUM CHLORIDE
  15. AMBRISENTAN [Concomitant]
     Active Substance: AMBRISENTAN

REACTIONS (4)
  - Headache [Recovered/Resolved]
  - Head discomfort [Recovered/Resolved]
  - Blood viscosity increased [Unknown]
  - Product storage error [Unknown]

NARRATIVE: CASE EVENT DATE: 20241226
